FAERS Safety Report 8380552-X (Version None)
Quarter: 2012Q2

REPORT INFORMATION
  Report Type: 
  Country: None (occurrence: None)
  Receive Date: 20120523
  Receipt Date: 20120514
  Transmission Date: 20120825
  Serious: Yes (Life-Threatening, Hospitalization, Other)
  Sender: FDA-Public Use
  Company Number: JP-ROCHE-1047187

PATIENT
  Sex: Female
  Weight: 48 kg

DRUGS (7)
  1. NEORESTAMIN [Concomitant]
     Indication: INFLUENZA
     Route: 048
     Dates: start: 20120204, end: 20120208
  2. BETAHISTINE MESILATE [Concomitant]
     Route: 048
  3. CAFFEINE HYDRATE [Concomitant]
     Indication: INFLUENZA
     Route: 048
     Dates: start: 20120204, end: 20120208
  4. SELBEX [Concomitant]
     Indication: INFLUENZA
     Route: 048
     Dates: start: 20120204, end: 20120208
  5. TAMIFLU [Suspect]
     Indication: INFLUENZA
     Route: 048
     Dates: start: 20120204, end: 20120208
  6. ASVERIN [Concomitant]
     Indication: INFLUENZA
     Route: 048
     Dates: start: 20120204, end: 20120208
  7. LEVOFLOXACIN [Concomitant]
     Indication: INFECTION
     Route: 048
     Dates: start: 20120207, end: 20120208

REACTIONS (4)
  - THROMBOCYTOPENIA [None]
  - ANAEMIA [None]
  - ANAEMIA HAEMOLYTIC AUTOIMMUNE [None]
  - IDIOPATHIC THROMBOCYTOPENIC PURPURA [None]
